FAERS Safety Report 7480659-5 (Version None)
Quarter: 2011Q2

REPORT INFORMATION
  Report Type: 
  Country: None (occurrence: None)
  Receive Date: 20110506
  Receipt Date: 20110421
  Transmission Date: 20111010
  Serious: Yes (Hospitalization)
  Sender: FDA-Public Use
  Company Number: 031289

PATIENT
  Sex: Male

DRUGS (2)
  1. XYZAL [Suspect]
     Indication: ECZEMA
     Dosage: (5 MG QD ORAL)
     Route: 048
     Dates: start: 20110316, end: 20110410
  2. LANSOPRAZOLE [Concomitant]

REACTIONS (1)
  - PLATELET COUNT DECREASED [None]
